FAERS Safety Report 4284634-3 (Version None)
Quarter: 2004Q1

REPORT INFORMATION
  Report Type: 
  Country: None (occurrence: None)
  Receive Date: 20040130
  Receipt Date: 20040119
  Transmission Date: 20041129
  Serious: Yes (Death)
  Sender: FDA-Public Use
  Company Number: EWC031237384

PATIENT
  Age: 44 Year
  Sex: Female

DRUGS (11)
  1. GEMCITABINE HYDROCHLORIDE           (GEMCITABINE) [Suspect]
     Indication: NON-SMALL CELL LUNG CANCER
     Dosage: 1600 MG/2 OTHER
     Route: 042
     Dates: start: 20030602, end: 20030701
  2. CISPLATIN [Suspect]
     Indication: NON-SMALL CELL LUNG CANCER
     Dosage: 110 MG/1 OTHER
     Route: 042
     Dates: start: 20030602, end: 20030624
  3. MYPRODOL [Concomitant]
  4. AMINOPHYLLINE [Concomitant]
  5. PENTANYL PATCH [Concomitant]
  6. COUGH SYRUP [Concomitant]
  7. RHINATHIOL (CARBOCISTEINE) [Concomitant]
  8. FAMOTIDINE [Concomitant]
  9. ANTABOL [Concomitant]
  10. MS CONTIN [Concomitant]
  11. MUCOPECT   (AMBROXOL HYDROCHLORIDE) [Concomitant]

REACTIONS (2)
  - MALIGNANT PLEURAL EFFUSION [None]
  - RESPIRATORY FAILURE [None]
